FAERS Safety Report 13069760 (Version 1)
Quarter: 2016Q4

REPORT INFORMATION
  Report Type: Spontaneous
  Country: IT (occurrence: IT)
  Receive Date: 20161228
  Receipt Date: 20161228
  Transmission Date: 20170207
  Serious: Yes (Hospitalization)
  Sender: FDA-Public Use
  Company Number: IT-ARBOR PHARMACEUTICALS, LLC-IT-2016ARB002422

PATIENT
  Age: 3 Year
  Sex: Male

DRUGS (1)
  1. LAMOTRIGINE. [Suspect]
     Active Substance: LAMOTRIGINE
     Indication: ACCIDENTAL EXPOSURE TO PRODUCT
     Dosage: 200 MG, UNK (8 TABLETS MISSING FROM BLISTER)

REACTIONS (13)
  - Accidental exposure to product by child [Recovered/Resolved]
  - Generalised tonic-clonic seizure [Recovered/Resolved]
  - Oculogyric crisis [Recovered/Resolved]
  - Thirst [Recovered/Resolved]
  - Toxicity to various agents [Recovered/Resolved]
  - Hyperphagia [Not Recovered/Not Resolved]
  - Malaise [Recovered/Resolved]
  - Sinus tachycardia [Recovered/Resolved]
  - Ataxia [Recovered/Resolved]
  - Loss of consciousness [Recovered/Resolved]
  - Dystonia [Recovered/Resolved]
  - Agitation [Recovered/Resolved]
  - Restlessness [Recovered/Resolved]
